FAERS Safety Report 20306383 (Version 1)
Quarter: 2022Q1

REPORT INFORMATION
  Report Type: Spontaneous
  Country: US (occurrence: None)
  Receive Date: 20220106
  Receipt Date: 20220106
  Transmission Date: 20220423
  Serious: No
  Sender: FDA-Public Use
  Company Number: None

PATIENT

DRUGS (3)
  1. LEXAPRO [Suspect]
     Active Substance: ESCITALOPRAM OXALATE
  2. LEXAPRO [Concomitant]
     Active Substance: ESCITALOPRAM OXALATE
  3. INVEGA SUSTENNA [Suspect]
     Active Substance: PALIPERIDONE PALMITATE

REACTIONS (11)
  - Restlessness [None]
  - Malaise [None]
  - Vomiting [None]
  - Heart rate increased [None]
  - Deformity [None]
  - Musculoskeletal stiffness [None]
  - Body dysmorphic disorder [None]
  - Heart rate increased [None]
  - Blood pressure increased [None]
  - Tremor [None]
  - Psychotic disorder [None]
